FAERS Safety Report 11192437 (Version 4)
Quarter: 2015Q3

REPORT INFORMATION
  Report Type: Spontaneous
  Country: JP (occurrence: JP)
  Receive Date: 20150616
  Receipt Date: 20150727
  Transmission Date: 20151125
  Serious: Yes (Death, Other)
  Sender: FDA-Public Use
  Company Number: JP-PFIZER INC-2015200409

PATIENT
  Age: 63 Year
  Sex: Male
  Weight: 43 kg

DRUGS (7)
  1. TAMSULOSIN [Concomitant]
     Active Substance: TAMSULOSIN
     Indication: POLLAKIURIA
     Dosage: 0.2 MG, 1X/DAY
     Route: 048
     Dates: start: 20150430, end: 20150511
  2. CHAMPIX [Suspect]
     Active Substance: VARENICLINE TARTRATE
     Indication: SMOKING CESSATION THERAPY
     Dosage: 1 MG, 2X/DAY
     Route: 048
     Dates: start: 20150428
  3. RISPERIDONE PFIZER [Suspect]
     Active Substance: RISPERIDONE
     Indication: HALLUCINATION
     Dosage: 1 MG, 1X/DAY
     Route: 048
     Dates: start: 20150508
  4. OPTIRAY 320 [Suspect]
     Active Substance: IOVERSOL
     Indication: VENOGRAM
     Dosage: 320 MG, 1X/DAY
     Route: 042
     Dates: start: 20150512
  5. FLUNITRAZEPAM [Concomitant]
     Active Substance: FLUNITRAZEPAM
     Indication: INSOMNIA
     Dosage: 2 MG, 1X/DAY
     Route: 048
     Dates: start: 20150428, end: 20150511
  6. BROTIZOLAM [Concomitant]
     Active Substance: BROTIZOLAM
     Indication: INSOMNIA
     Dosage: 0.25 MG, 1X/DAY
     Route: 048
     Dates: start: 20150428, end: 20150507
  7. RISPERIDONE PFIZER [Suspect]
     Active Substance: RISPERIDONE
     Indication: DELUSION

REACTIONS (8)
  - Persecutory delusion [Recovering/Resolving]
  - Anxiety [Unknown]
  - Arrhythmia [Fatal]
  - Sudden death [Fatal]
  - Hallucination [Recovering/Resolving]
  - Respiratory arrest [Unknown]
  - Cardiac arrest [Unknown]
  - Delirium [Recovering/Resolving]

NARRATIVE: CASE EVENT DATE: 20150508
